FAERS Safety Report 23695827 (Version 1)
Quarter: 2024Q2

REPORT INFORMATION
  Report Type: Spontaneous
  Country: US (occurrence: US)
  Receive Date: 20240402
  Receipt Date: 20240402
  Transmission Date: 20240716
  Serious: No
  Sender: FDA-Public Use
  Company Number: US-BRISTOL-MYERS SQUIBB COMPANY-2024-049387

PATIENT
  Age: 56 Year
  Sex: Male

DRUGS (2)
  1. POMALYST [Suspect]
     Active Substance: POMALIDOMIDE
     Indication: Plasma cell myeloma
     Dates: start: 20231117
  2. POMALYST [Suspect]
     Active Substance: POMALIDOMIDE
     Dosage: 21
     Dates: start: 202312

REACTIONS (2)
  - Rash pruritic [Unknown]
  - Intentional dose omission [Unknown]
